FAERS Safety Report 7589553-2 (Version None)
Quarter: 2011Q3

REPORT INFORMATION
  Report Type: 
  Country: None (occurrence: None)
  Receive Date: 20110705
  Receipt Date: 20110627
  Transmission Date: 20111222
  Serious: Yes (Hospitalization)
  Sender: FDA-Public Use
  Company Number: BE-PFIZER INC-2011146643

PATIENT
  Age: 31 Year
  Sex: Male

DRUGS (3)
  1. PARACETAMOL [Concomitant]
     Indication: HEADACHE
     Dosage: UNK
  2. PANTOPRAZOLE [Suspect]
     Indication: GASTROOESOPHAGEAL REFLUX DISEASE
  3. PANTOPRAZOLE [Suspect]
     Indication: OROPHARYNGEAL PAIN
     Dosage: 40 MG DAILY
     Route: 048
     Dates: start: 20110618, end: 20110623

REACTIONS (6)
  - DIZZINESS [None]
  - DRY MOUTH [None]
  - VISUAL IMPAIRMENT [None]
  - HEADACHE [None]
  - MALAISE [None]
  - ABDOMINAL PAIN [None]
